FAERS Safety Report 13381071 (Version 1)
Quarter: 2017Q1

REPORT INFORMATION
  Report Type: Spontaneous
  Country: US (occurrence: US)
  Receive Date: 20170329
  Receipt Date: 20170329
  Transmission Date: 20170429
  Serious: Yes (Hospitalization)
  Sender: FDA-Public Use
  Company Number: US-TEVA-752388USA

PATIENT
  Age: 71 Year
  Sex: Female

DRUGS (16)
  1. TROSPIUM CHLORIDE. [Suspect]
     Active Substance: TROSPIUM CHLORIDE
     Dosage: 60 MILLIGRAM DAILY; ONCE DAILY
  2. VALSARTAN. [Suspect]
     Active Substance: VALSARTAN
     Dosage: 160 MILLIGRAM DAILY; ONCE DAILY
  3. PRILOSEC [Suspect]
     Active Substance: OMEPRAZOLE MAGNESIUM
     Dosage: 20 MILLIGRAM DAILY; ONCE DAILY
  4. BOTOX [Suspect]
     Active Substance: ONABOTULINUMTOXINA
     Indication: HYPERTONIC BLADDER
     Dosage: EVERY 3-4 MONTHS
  5. IRON [Suspect]
     Active Substance: IRON
     Dosage: APPROX EVERY 6 MONTHS
  6. LEVOTHYROXINE. [Suspect]
     Active Substance: LEVOTHYROXINE
     Dosage: 50 MICROGRAM DAILY; ONCE DAILY
  7. AMLODIPINE BESYLATE. [Suspect]
     Active Substance: AMLODIPINE BESYLATE
     Dosage: 5 MILLIGRAM DAILY; ONCE DAILY
  8. VITAMIN D3 [Suspect]
     Active Substance: CHOLECALCIFEROL
     Dosage: DAILY
  9. ITRACONAZOLE. [Suspect]
     Active Substance: ITRACONAZOLE
     Dosage: 300 MILLIGRAM DAILY; THRICE DAILY
  10. PREDNISONE. [Suspect]
     Active Substance: PREDNISONE
     Dosage: THRICE DAILY
  11. PROMETHAZINE [Suspect]
     Active Substance: PROMETHAZINE\PROMETHAZINE HYDROCHLORIDE
     Dosage: 1 TABLET EVERY 6 HOURS AS NEEDED
  12. VITAMIN B12 [Suspect]
     Active Substance: CYANOCOBALAMIN
     Dosage: 2500 MICROGRAM DAILY; ONCE DAILY
  13. XELJANZ [Suspect]
     Active Substance: TOFACITINIB CITRATE
     Dosage: TWICE DAILY
     Dates: start: 201010, end: 201702
  14. METOPROLOL. [Suspect]
     Active Substance: METOPROLOL
     Dosage: 25 MILLIGRAM DAILY; ONCE DAILY
  15. ELIQUIS [Suspect]
     Active Substance: APIXABAN
     Dosage: 10 MILLIGRAM DAILY; TWICE DAILY
  16. COLESTYRAMINE [Suspect]
     Active Substance: CHOLESTYRAMINE
     Dosage: ONE SCOOP IN 4 OZ JUICE

REACTIONS (4)
  - Urinary tract infection [Not Recovered/Not Resolved]
  - Anaemia [Not Recovered/Not Resolved]
  - Nasopharyngitis [Recovered/Resolved]
  - Malaise [Unknown]

NARRATIVE: CASE EVENT DATE: 201601
